FAERS Safety Report 10133723 (Version 4)
Quarter: 2014Q2

REPORT INFORMATION
  Report Type: Report from Study
  Country: KR (occurrence: KR)
  Receive Date: 20140428
  Receipt Date: 20140507
  Transmission Date: 20141212
  Serious: Yes (Hospitalization, Other)
  Sender: FDA-Public Use
  Company Number: KR-ABBVIE-11P-090-0701292-00

PATIENT
  Sex: Male
  Weight: 60 kg

DRUGS (8)
  1. KALETRA [Suspect]
     Indication: HIV INFECTION
     Route: 048
     Dates: start: 20100512, end: 20101222
  2. ABACAVIR [Suspect]
     Indication: ANTIRETROVIRAL THERAPY
     Dosage: 2 TABS DAILY
     Dates: start: 20100518, end: 20110124
  3. COMBIVIR [Suspect]
     Indication: PRODUCT USED FOR UNKNOWN INDICATION
  4. 3TC [Concomitant]
     Indication: ANTIRETROVIRAL THERAPY
     Dates: start: 20100518
  5. 3TC/AZT [Concomitant]
     Indication: ANTIRETROVIRAL THERAPY
     Dosage: 2 TABS DAILY
     Route: 048
     Dates: start: 20100512, end: 20100517
  6. SEPTRIN [Concomitant]
     Indication: OPPORTUNISTIC INFECTION PROPHYLAXIS
     Dosage: 1 TAB DAILY
     Route: 048
     Dates: start: 20100512
  7. ABC [Concomitant]
     Indication: PRODUCT USED FOR UNKNOWN INDICATION
  8. LIPIDIL SUPRA [Concomitant]
     Indication: HYPERTRIGLYCERIDAEMIA

REACTIONS (5)
  - Bone marrow failure [Recovered/Resolved]
  - Acute myocardial infarction [Recovering/Resolving]
  - Hypertriglyceridaemia [Recovering/Resolving]
  - Weight increased [Unknown]
  - Blood cholesterol increased [Unknown]
